FAERS Safety Report 11647807 (Version 1)
Quarter: 2015Q4

REPORT INFORMATION
  Report Type: Spontaneous
  Country: US (occurrence: None)
  Receive Date: 20151020
  Receipt Date: 20151020
  Transmission Date: 20160304
  Serious: Yes (Other)
  Sender: FDA-Public Use
  Company Number: None

PATIENT
  Age: 74 Year
  Sex: Female

DRUGS (2)
  1. CEFTRIAXONE 10 GRAMS APOTEX [Suspect]
     Active Substance: CEFTRIAXONE
     Indication: LYME DISEASE
     Route: 042
     Dates: start: 20150421, end: 20150427
  2. CEFTRIAXONE 2 GRAMS HOSPIRA [Suspect]
     Active Substance: CEFTRIAXONE

REACTIONS (1)
  - Urticaria [None]

NARRATIVE: CASE EVENT DATE: 20150426
